FAERS Safety Report 23387185 (Version 1)
Quarter: 2024Q1

REPORT INFORMATION
  Report Type: Spontaneous
  Country: US (occurrence: None)
  Receive Date: 20240109
  Receipt Date: 20240109
  Transmission Date: 20240409
  Serious: No
  Sender: FDA-Public Use
  Company Number: None

PATIENT
  Sex: 0

DRUGS (1)
  1. PERSERIS [Suspect]
     Active Substance: RISPERIDONE

REACTIONS (2)
  - Injection site mass [None]
  - Injection site discolouration [None]
